FAERS Safety Report 14152266 (Version 2)
Quarter: 2017Q4

REPORT INFORMATION
  Report Type: Spontaneous
  Country: JP (occurrence: JP)
  Receive Date: 20171102
  Receipt Date: 20171222
  Transmission Date: 20180321
  Serious: Yes (Death, Other)
  Sender: FDA-Public Use
  Company Number: JP-ASTRAZENECA-2017SF11149

PATIENT
  Age: 28724 Day
  Sex: Male
  Weight: 45 kg

DRUGS (8)
  1. CLARITH [Suspect]
     Active Substance: CLARITHROMYCIN
     Indication: PHARYNGITIS
     Route: 048
     Dates: start: 20170602, end: 20170605
  2. ONGLYZA [Suspect]
     Active Substance: SAXAGLIPTIN HYDROCHLORIDE
     Indication: DIABETES MELLITUS
     Route: 048
     Dates: start: 20170614, end: 20170703
  3. FERROMIA [Concomitant]
     Active Substance: SODIUM FERROUS CITRATE
     Indication: ANAEMIA
     Route: 048
     Dates: start: 20170816
  4. MIYA-BM [Concomitant]
     Active Substance: CLOSTRIDIUM BUTYRICUM SPORES STRAIN M-55
     Indication: DYSPEPSIA
     Route: 048
     Dates: start: 20150114
  5. FLORINEF ACETATE [Concomitant]
     Active Substance: FLUDROCORTISONE ACETATE
     Indication: ADRENAL INSUFFICIENCY
     Route: 048
     Dates: start: 20150420
  6. CILOSTAZOL. [Concomitant]
     Active Substance: CILOSTAZOL
     Indication: CEREBRAL INFARCTION
     Route: 048
     Dates: start: 20141007
  7. PREDONINE [Concomitant]
     Active Substance: PREDNISOLONE
     Indication: STILL^S DISEASE
     Route: 048
     Dates: start: 20150727
  8. CARBOCISTEINE [Concomitant]
     Active Substance: CARBOCYSTEINE
     Indication: SPUTUM RETENTION
     Route: 048
     Dates: start: 20160907

REACTIONS (2)
  - Pneumonia [Fatal]
  - Hepatic function abnormal [Recovering/Resolving]

NARRATIVE: CASE EVENT DATE: 20170605
